FAERS Safety Report 24319344 (Version 1)
Quarter: 2024Q3

REPORT INFORMATION
  Report Type: Report from Study
  Country: US (occurrence: US)
  Receive Date: 20240914
  Receipt Date: 20240914
  Transmission Date: 20241017
  Serious: Yes (Hospitalization)
  Sender: ABBVIE
  Company Number: US-ABBVIE-5786251

PATIENT
  Sex: Male

DRUGS (2)
  1. VENCLEXTA [Suspect]
     Active Substance: VENETOCLAX
     Indication: Chronic lymphocytic leukaemia
     Dosage: TOOK TWO PILLS IN THE MORNING AND TWO LATER ON INSTEAD OF TAKING ALL FOUR?PILLS AT ONCE?END DATE ...
     Route: 048
     Dates: start: 202404
  2. VENCLEXTA [Suspect]
     Active Substance: VENETOCLAX
     Indication: Chronic lymphocytic leukaemia
     Dosage: TOOK TWO PILLS IN THE MORNING AND TWO LATER ON INSTEAD OF TAKING ALL FOUR?PILLS AT ONCE?START  DA...
     Route: 048

REACTIONS (5)
  - Stress [Unknown]
  - Nausea [Unknown]
  - Eye disorder [Unknown]
  - Vomiting [Unknown]
  - Diarrhoea [Unknown]

NARRATIVE: CASE EVENT DATE: 20240101
